FAERS Safety Report 24123873 (Version 1)
Quarter: 2024Q3

REPORT INFORMATION
  Report Type: Spontaneous
  Country: US (occurrence: US)
  Receive Date: 20240723
  Receipt Date: 20240723
  Transmission Date: 20241016
  Serious: No
  Sender: OTSUKA
  Company Number: US-OTSUKA-2024_012040

PATIENT
  Age: 74 Year
  Sex: Female

DRUGS (5)
  1. REXULTI [Suspect]
     Active Substance: BREXPIPRAZOLE
     Indication: Rapid eye movements sleep abnormal
     Dosage: 0.5 MG (ONCE DAILY FOR 7 DAYS)
     Route: 065
     Dates: start: 20240422
  2. REXULTI [Suspect]
     Active Substance: BREXPIPRAZOLE
     Indication: Parkinson^s disease
     Dosage: 1 MG (ONCE DAILY FOR 7 DAYS)
     Route: 065
     Dates: start: 20240422
  3. REXULTI [Suspect]
     Active Substance: BREXPIPRAZOLE
     Indication: Insomnia
  4. REXULTI [Suspect]
     Active Substance: BREXPIPRAZOLE
     Indication: Sleep talking
  5. REXULTI [Suspect]
     Active Substance: BREXPIPRAZOLE
     Indication: Nightmare

REACTIONS (1)
  - Product use in unapproved indication [Unknown]
